FAERS Safety Report 13788986 (Version 1)
Quarter: 2017Q3

REPORT INFORMATION
  Report Type: Spontaneous
  Country: US (occurrence: US)
  Receive Date: 20170725
  Receipt Date: 20170725
  Transmission Date: 20171127
  Serious: No
  Sender: FDA-Public Use
  Company Number: US-UNITED THERAPEUTICS-UNT-2017-005418

PATIENT
  Age: 57 Year
  Sex: Female
  Weight: 123.26 kg

DRUGS (1)
  1. REMODULIN [Suspect]
     Active Substance: TREPROSTINIL
     Indication: PULMONARY ARTERIAL HYPERTENSION
     Dosage: 0.009 ?G/KG, CONTINUING
     Route: 041
     Dates: start: 20170323

REACTIONS (6)
  - Headache [Unknown]
  - Fall [Unknown]
  - Nausea [Unknown]
  - Pain in extremity [Unknown]
  - Visual impairment [Unknown]
  - Head injury [Unknown]

NARRATIVE: CASE EVENT DATE: 20170412
